FAERS Safety Report 4435568-2 (Version None)
Quarter: 2004Q3

REPORT INFORMATION
  Report Type: 
  Country: None (occurrence: None)
  Receive Date: 20040726
  Receipt Date: 20040503
  Transmission Date: 20050211
  Serious: No
  Sender: FDA-Public Use
  Company Number: USA040566530

PATIENT
  Age: 64 Year
  Sex: Female
  Weight: 85 kg

DRUGS (10)
  1. FORTEO [Suspect]
     Indication: OSTEOPOROSIS
     Dosage: 20 UG DAY
     Dates: start: 20040401
  2. OSTEO BI-FLEX [Concomitant]
  3. MULTI-VITAMIN [Concomitant]
  4. VIACTIV [Concomitant]
  5. IBUPROFEN [Concomitant]
  6. ALEVE [Concomitant]
  7. CLARITIN [Concomitant]
  8. AMITRIPTYLINE HCL [Concomitant]
  9. FOSAMAX [Concomitant]
  10. ESTROGEN NOS [Concomitant]

REACTIONS (3)
  - FREQUENT BOWEL MOVEMENTS [None]
  - INJECTION SITE ERYTHEMA [None]
  - INJECTION SITE HAEMORRHAGE [None]
